FAERS Safety Report 15684246 (Version 1)
Quarter: 2018Q4

REPORT INFORMATION
  Report Type: Other
  Country: HR (occurrence: HR)
  Receive Date: 20181204
  Receipt Date: 20181204
  Transmission Date: 20190205
  Serious: Yes (Other)
  Sender: FDA-Public Use
  Company Number: HR-CELLTRION INC.-2018HR024114

PATIENT

DRUGS (11)
  1. FOLACIN                            /00024201/ [Suspect]
     Active Substance: FOLIC ACID
     Indication: PSORIATIC ARTHROPATHY
     Dosage: UNK
     Route: 065
  2. VITAMIN D3 [Concomitant]
     Active Substance: CHOLECALCIFEROL
     Indication: PRODUCT USED FOR UNKNOWN INDICATION
     Route: 065
  3. EBETREXAT                          /00113801/ [Suspect]
     Active Substance: METHOTREXATE SODIUM
     Indication: PSORIASIS
     Dosage: 10 MG
     Route: 058
  4. INFLIXIMAB (UNKNOWN) [Suspect]
     Active Substance: INFLIXIMAB
     Indication: PSORIASIS
     Dosage: 5 MG/KG
     Route: 042
     Dates: start: 201706, end: 201706
  5. EBETREXAT                          /00113801/ [Suspect]
     Active Substance: METHOTREXATE SODIUM
     Indication: PSORIATIC ARTHROPATHY
     Dosage: 10 MG, 1/WEEK
     Route: 058
     Dates: start: 201706, end: 20180606
  6. INFLIXIMAB (UNKNOWN) [Suspect]
     Active Substance: INFLIXIMAB
     Indication: PSORIATIC ARTHROPATHY
     Dosage: UNK
     Route: 065
  7. DECORTIN [Concomitant]
     Active Substance: PREDNISONE
     Indication: PRODUCT USED FOR UNKNOWN INDICATION
     Route: 065
  8. EBETREXAT                          /00113801/ [Suspect]
     Active Substance: METHOTREXATE SODIUM
     Dosage: 20 MG, 1/WEEK
     Route: 058
  9. METHOTREXATE. [Suspect]
     Active Substance: METHOTREXATE
     Indication: PSORIASIS
     Dosage: 7.5 MG, 1/WEEK
     Route: 065
  10. METHOTREXATE. [Suspect]
     Active Substance: METHOTREXATE
     Indication: PSORIATIC ARTHROPATHY
     Dosage: 20 MG, 1/WEEK
     Route: 048
  11. FOLACIN                            /00024201/ [Suspect]
     Active Substance: FOLIC ACID
     Indication: PSORIASIS
     Dosage: 1 DF, 1/WEEK (TABLET)
     Route: 065

REACTIONS (6)
  - Feeling abnormal [Unknown]
  - Drug ineffective [Unknown]
  - Aspartate aminotransferase abnormal [Unknown]
  - Psoriatic arthropathy [Recovering/Resolving]
  - Nausea [Unknown]
  - Alanine aminotransferase abnormal [Unknown]

NARRATIVE: CASE EVENT DATE: 201704
